FAERS Safety Report 14574883 (Version 1)
Quarter: 2018Q1

REPORT INFORMATION
  Report Type: Spontaneous
  Country: US (occurrence: US)
  Receive Date: 20180227
  Receipt Date: 20180227
  Transmission Date: 20180509
  Serious: No
  Sender: FDA-Public Use
  Company Number: US-ROCHE-1988570

PATIENT
  Sex: Female

DRUGS (5)
  1. XOLAIR [Suspect]
     Active Substance: OMALIZUMAB
     Indication: URTICARIA
     Route: 058
     Dates: start: 20160304, end: 20170517
  2. BOTOX [Concomitant]
     Active Substance: ONABOTULINUMTOXINA
  3. XOLAIR [Suspect]
     Active Substance: OMALIZUMAB
     Indication: ECZEMA
  4. DUPILUMAB [Concomitant]
     Active Substance: DUPILUMAB
  5. TRIAMCINOLONE [Concomitant]
     Active Substance: TRIAMCINOLONE

REACTIONS (3)
  - No adverse event [Unknown]
  - Intentional product use issue [Unknown]
  - Off label use [Unknown]
